FAERS Safety Report 14579592 (Version 1)
Quarter: 2018Q1

REPORT INFORMATION
  Report Type: Other
  Country: IN (occurrence: IN)
  Receive Date: 20180227
  Receipt Date: 20180227
  Transmission Date: 20180509
  Serious: Yes (Life-Threatening, Hospitalization)
  Sender: FDA-Public Use
  Company Number: IN-MEDICURE INC.-2042675

PATIENT
  Age: 53 Year
  Sex: Male

DRUGS (8)
  1. AGGRASTAT [Suspect]
     Active Substance: TIROFIBAN HYDROCHLORIDE
     Indication: ANTIPLATELET THERAPY
     Route: 040
  2. AGGRASTAT [Suspect]
     Active Substance: TIROFIBAN HYDROCHLORIDE
     Route: 041
  3. AGGRASTAT [Suspect]
     Active Substance: TIROFIBAN HYDROCHLORIDE
     Route: 041
  4. ECOSPRIN (ACETYLSALICYCLIC ACID) [Concomitant]
  5. ANTIARRTHYMICS (NOT SPECIFIED) [Concomitant]
  6. INOTROPES (NOT SPECIFIED) [Concomitant]
  7. DIURETICS (NOT SPECIFIED) [Concomitant]
  8. FUROSEMIDE. [Concomitant]
     Active Substance: FUROSEMIDE

REACTIONS (7)
  - Dyspnoea [Recovered/Resolved]
  - Pulmonary alveolar haemorrhage [Recovered/Resolved]
  - Intracardiac thrombus [Recovered/Resolved]
  - Ventricular tachycardia [Recovered/Resolved]
  - Haemoptysis [Recovered/Resolved]
  - Acute myocardial infarction [Recovered/Resolved]
  - Lung infiltration [Recovered/Resolved]
